FAERS Safety Report 5619862-5 (Version None)
Quarter: 2008Q1

REPORT INFORMATION
  Report Type: 
  Country: None (occurrence: None)
  Receive Date: 20080208
  Receipt Date: 20070115
  Transmission Date: 20080703
  Serious: Yes (Hospitalization)
  Sender: FDA-Public Use
  Company Number: US-ABBOTT-06P-163-0338421-00

PATIENT
  Sex: Male

DRUGS (9)
  1. VICODIN [Suspect]
     Indication: PAIN
  2. CETUXIMAB [Suspect]
     Indication: NON-SMALL CELL LUNG CANCER
     Dosage: 420 MILLIGRAM 1/1 CYCLICAL
     Route: 042
     Dates: start: 20051006, end: 20061020
  3. CETUXIMAB [Suspect]
  4. CETUXIMAB [Suspect]
  5. CETUXIMAB [Suspect]
  6. CARBOPLATIN [Suspect]
     Indication: NON-SMALL CELL LUNG CANCER METASTATIC
     Route: 042
     Dates: start: 20051006
  7. CARBOPLATIN [Suspect]
  8. PACLITAXEL [Suspect]
     Indication: NON-SMALL CELL LUNG CANCER METASTATIC
     Route: 042
     Dates: start: 20051006
  9. PACLITAXEL [Suspect]

REACTIONS (2)
  - CONSTIPATION [None]
  - URINARY RETENTION [None]
